FAERS Safety Report 5883016-8 (Version None)
Quarter: 2008Q3

REPORT INFORMATION
  Report Type: 
  Country: None (occurrence: None)
  Receive Date: 20080913
  Receipt Date: 20080826
  Transmission Date: 20090109
  Serious: No
  Sender: FDA-Public Use
  Company Number: US-ABBOTT-08P-163-0472638-00

PATIENT
  Sex: Female
  Weight: 73.094 kg

DRUGS (12)
  1. HUMIRA [Suspect]
     Indication: RHEUMATOID ARTHRITIS
     Route: 058
     Dates: start: 20080701
  2. METHOTREXATE [Concomitant]
     Indication: RHEUMATOID ARTHRITIS
     Dosage: 2.5 MG X 8
     Route: 048
     Dates: start: 20070101
  3. HYDROXYCHLOROQUINE [Concomitant]
     Indication: RHEUMATOID ARTHRITIS
     Route: 048
     Dates: start: 19980101
  4. TRAMADOL HCL [Concomitant]
     Indication: RHEUMATOID ARTHRITIS
     Dosage: 50MG X 3
     Route: 048
     Dates: start: 19980101
  5. TERAZOSIN HYDROCHLORIDE [Concomitant]
     Indication: RHEUMATOID ARTHRITIS
     Route: 048
     Dates: start: 19980101
  6. RANITIDINE HYDROCHLORIDE [Concomitant]
     Indication: GASTROOESOPHAGEAL REFLUX DISEASE
     Route: 048
  7. ATORVASTATIN CALCIUM [Concomitant]
     Indication: BLOOD CHOLESTEROL INCREASED
     Route: 048
  8. FOLIC ACID [Concomitant]
     Indication: VITAMIN SUPPLEMENTATION
     Route: 048
  9. METHYLPREDNISOLONE 16MG TAB [Concomitant]
     Indication: RHEUMATOID ARTHRITIS
     Route: 048
  10. AXOTAL [Concomitant]
     Indication: HEADACHE
     Route: 048
     Dates: start: 19980101
  11. CHLORDIAZEPOXIDE HCL [Concomitant]
     Indication: ANXIETY
     Route: 048
     Dates: start: 19670101
  12. VITAMIN TAB [Concomitant]
     Indication: VITAMIN SUPPLEMENTATION
     Route: 048

REACTIONS (7)
  - ASTHENIA [None]
  - CHILLS [None]
  - COUGH [None]
  - LETHARGY [None]
  - POSTNASAL DRIP [None]
  - PYREXIA [None]
  - THROAT IRRITATION [None]
